FAERS Safety Report 11100202 (Version 1)
Quarter: 2015Q2

REPORT INFORMATION
  Report Type: Spontaneous
  Country: US (occurrence: US)
  Receive Date: 20150508
  Receipt Date: 20150508
  Transmission Date: 20150821
  Serious: No
  Sender: FDA-Public Use
  Company Number: US-BANPHARM-20153414

PATIENT
  Sex: Male

DRUGS (1)
  1. IBUPROFEN CAPSULES 200 MG [Suspect]
     Active Substance: IBUPROFEN
     Dosage: 1 DF, BID,
     Route: 048
     Dates: start: 20150122

REACTIONS (5)
  - Mouth swelling [Recovering/Resolving]
  - Urticaria [Unknown]
  - Swelling face [Recovering/Resolving]
  - Nausea [Unknown]
  - Influenza [Unknown]

NARRATIVE: CASE EVENT DATE: 20150122
